FAERS Safety Report 7464861-4 (Version None)
Quarter: 2011Q2

REPORT INFORMATION
  Report Type: 
  Country: None (occurrence: None)
  Receive Date: 20110509
  Receipt Date: 20110427
  Transmission Date: 20111010
  Serious: Yes (Other)
  Sender: FDA-Public Use
  Company Number: TR-BAYER-2011-036103

PATIENT
  Age: 31 Year
  Sex: Female
  Weight: 62 kg

DRUGS (1)
  1. YASMIN [Suspect]
     Indication: CYST
     Dosage: UNK
     Route: 048
     Dates: start: 20090101

REACTIONS (2)
  - MACULE [None]
  - PIGMENTATION DISORDER [None]
